FAERS Safety Report 17009818 (Version 3)
Quarter: 2020Q1

REPORT INFORMATION
  Report Type: Spontaneous
  Country: US (occurrence: US)
  Receive Date: 20191108
  Receipt Date: 20200121
  Transmission Date: 20200409
  Serious: Yes (Other)
  Sender: FDA-Public Use
  Company Number: US-HORIZON-RAV-0351-2019

PATIENT
  Age: 25 Year
  Sex: Male

DRUGS (11)
  1. SPIRONOLACTONE. [Concomitant]
     Active Substance: SPIRONOLACTONE
  2. TRAMADOL. [Concomitant]
     Active Substance: TRAMADOL
  3. LABETALOL [Concomitant]
     Active Substance: LABETALOL\LABETALOL HYDROCHLORIDE
  4. PILOCARPINE. [Concomitant]
     Active Substance: PILOCARPINE
  5. ESOMEPRAZOLE. [Concomitant]
     Active Substance: ESOMEPRAZOLE MAGNESIUM
  6. LENVIMA [Suspect]
     Active Substance: LENVATINIB
     Indication: PRODUCT USED FOR UNKNOWN INDICATION
     Dosage: STARTED WITH 4MG THEN WENT UP TO 8MG DAILY FOR 2 DAYS
  7. ONDANSETRON [Concomitant]
     Active Substance: ONDANSETRON
  8. BUMETANIDE. [Concomitant]
     Active Substance: BUMETANIDE
  9. NEXAVAR [Concomitant]
     Active Substance: SORAFENIB
  10. CHOLESTYRAMINE. [Concomitant]
     Active Substance: CHOLESTYRAMINE
  11. RAVICTI [Suspect]
     Active Substance: GLYCEROL PHENYLBUTYRATE
     Indication: HYPERAMMONAEMIA
     Dosage: 5ML BY MOUTH THREE TIMES DAILY WITH MEALS
     Route: 048
     Dates: start: 201910

REACTIONS (7)
  - Thrombosis [Recovered/Resolved]
  - Blood pressure fluctuation [Recovering/Resolving]
  - Thrombectomy [Recovered/Resolved]
  - Hypokalaemia [Unknown]
  - Nausea [Unknown]
  - Acute kidney injury [Unknown]
  - Pain [Recovering/Resolving]

NARRATIVE: CASE EVENT DATE: 20191029
